FAERS Safety Report 16389009 (Version 1)
Quarter: 2019Q2

REPORT INFORMATION
  Report Type: Spontaneous
  Country: US (occurrence: US)
  Receive Date: 20190429
  Receipt Date: 20190429
  Transmission Date: 20190711
  Serious: Yes (Hospitalization)
  Sender: FDA-Public Use
  Company Number: None

PATIENT
  Age: 52 Year
  Sex: Male
  Weight: 90.85 kg

DRUGS (1)
  1. PRIMIDONE. [Suspect]
     Active Substance: PRIMIDONE
     Indication: SEIZURE
     Route: 048
     Dates: start: 20181001, end: 20181008

REACTIONS (3)
  - Delirium [None]
  - Nightmare [None]
  - Hallucination [None]

NARRATIVE: CASE EVENT DATE: 20181001
